FAERS Safety Report 23810276 (Version 1)
Quarter: 2024Q2

REPORT INFORMATION
  Report Type: Report from Study
  Country: US (occurrence: US)
  Receive Date: 20240502
  Receipt Date: 20240502
  Transmission Date: 20240716
  Serious: No
  Sender: FDA-Public Use
  Company Number: US-ROCHE-3541500

PATIENT
  Age: 70 Year
  Sex: Female

DRUGS (1)
  1. GAVRETO [Suspect]
     Active Substance: PRALSETINIB
     Indication: Thyroid cancer
     Dosage: TAKE 3 CAPSULE(S) BY MOUTH (300 MG TOTAL) DAILY
     Route: 048

REACTIONS (1)
  - Gait disturbance [Unknown]
